FAERS Safety Report 21121780 (Version 2)
Quarter: 2022Q4

REPORT INFORMATION
  Report Type: Spontaneous
  Country: CA (occurrence: CA)
  Receive Date: 20220722
  Receipt Date: 20221028
  Transmission Date: 20230112
  Serious: Yes (Death, Life-Threatening, Hospitalization, Other)
  Sender: FDA-Public Use
  Company Number: None

PATIENT
  Age: 79 Year
  Sex: Female

DRUGS (8)
  1. LOVENOX [Suspect]
     Active Substance: ENOXAPARIN SODIUM
     Indication: Thrombosis prophylaxis
     Dosage: UNK
     Route: 058
     Dates: start: 2021, end: 2021
  2. PLAVIX [Suspect]
     Active Substance: CLOPIDOGREL BISULFATE
     Indication: Acute myocardial infarction
     Dosage: UNK
     Dates: start: 2021, end: 2021
  3. ASPIRIN [Suspect]
     Active Substance: ASPIRIN
     Indication: Arteriosclerosis coronary artery
     Dosage: 80 MG, QD
     Route: 048
     Dates: end: 2021
  4. TNKASE [Suspect]
     Active Substance: TENECTEPLASE
     Indication: Thrombolysis
     Dosage: UNK
     Dates: start: 2021, end: 2021
  5. RAMIPRIL [Concomitant]
     Active Substance: RAMIPRIL
  6. ACETAMINOPHEN [Concomitant]
     Active Substance: ACETAMINOPHEN
  7. CELECOXIB [Concomitant]
     Active Substance: CELECOXIB
     Dosage: UNK UNK, PRN
  8. CARBIDOPA\LEVODOPA [Concomitant]
     Active Substance: CARBIDOPA\LEVODOPA

REACTIONS (4)
  - Vascular stent thrombosis [Fatal]
  - Thrombolysis [Fatal]
  - Cerebral haemorrhage [Fatal]
  - Intraventricular haemorrhage [Fatal]

NARRATIVE: CASE EVENT DATE: 20210101
